FAERS Safety Report 18821302 (Version 1)
Quarter: 2021Q1

REPORT INFORMATION
  Report Type: Spontaneous
  Country: US (occurrence: US)
  Receive Date: 20210202
  Receipt Date: 20210202
  Transmission Date: 20210419
  Serious: Yes (Death)
  Sender: FDA-Public Use
  Company Number: None

PATIENT
  Age: 24 Year
  Sex: Male
  Weight: 58.5 kg

DRUGS (2)
  1. VITAMIN D [Suspect]
     Active Substance: VITAMIN D NOS
     Route: 048
     Dates: start: 20170421, end: 20180104
  2. LS1293 SPORE STUDY [Concomitant]

REACTIONS (3)
  - Metastases to lung [None]
  - Acute respiratory failure [None]
  - Hypoxia [None]

NARRATIVE: CASE EVENT DATE: 20180104
